FAERS Safety Report 20884913 (Version 1)
Quarter: 2022Q2

REPORT INFORMATION
  Report Type: Report from Study
  Country: US (occurrence: US)
  Receive Date: 20220527
  Receipt Date: 20220527
  Transmission Date: 20220721
  Serious: No
  Sender: FDA-Public Use
  Company Number: US-ESPERIONTHERAPEUTICS-2022USA00810

PATIENT
  Sex: Female

DRUGS (5)
  1. BEMPEDOIC ACID [Suspect]
     Active Substance: BEMPEDOIC ACID
     Indication: Ischaemic heart disease prophylaxis
     Dosage: 180 MILLIGRAM, QD
     Route: 048
     Dates: start: 2021
  2. BEMPEDOIC ACID [Suspect]
     Active Substance: BEMPEDOIC ACID
     Dosage: 0.5 DOSAGE FORM (1/2 TABLET), QD
     Route: 048
  3. SYNTHROID [Concomitant]
     Active Substance: LEVOTHYROXINE SODIUM
     Dosage: 75 MICROGRAM, QD
     Route: 065
  4. ELMIRON [Concomitant]
     Active Substance: PENTOSAN POLYSULFATE SODIUM
     Dosage: 200 MILLIGRAM, QD
     Route: 065
  5. VIVELLE [Concomitant]
     Active Substance: ESTRADIOL
     Dosage: 0.1 MILLIGRAM
     Route: 065

REACTIONS (4)
  - Headache [Not Recovered/Not Resolved]
  - Weight increased [Recovered/Resolved]
  - Dizziness [Recovered/Resolved]
  - Off label use [Not Recovered/Not Resolved]

NARRATIVE: CASE EVENT DATE: 20210101
